FAERS Safety Report 4606855-X (Version None)
Quarter: 2005Q1

REPORT INFORMATION
  Report Type: 
  Country: None (occurrence: None)
  Receive Date: 20050314
  Receipt Date: 20050308
  Transmission Date: 20050727
  Serious: Yes (Other)
  Sender: FDA-Public Use
  Company Number: 200512159GDDC

PATIENT
  Age: 33 Year
  Sex: Female

DRUGS (1)
  1. LANTUS [Suspect]
     Indication: DIABETES MELLITUS
     Dosage: DOSE UNIT: UNITS
     Route: 058
     Dates: start: 20050220

REACTIONS (3)
  - ANGINA PECTORIS [None]
  - BLOOD GLUCOSE ABNORMAL [None]
  - FEELING ABNORMAL [None]
